FAERS Safety Report 11984755 (Version 1)
Quarter: 2016Q1

REPORT INFORMATION
  Report Type: Spontaneous
  Country: US (occurrence: US)
  Receive Date: 20160201
  Receipt Date: 20160201
  Transmission Date: 20160526
  Serious: Yes (Other)
  Sender: FDA-Public Use
  Company Number: US-VALIDUS PHARMACEUTICALS LLC-US-2016VAL000098

PATIENT
  Age: 15 Year
  Sex: Female

DRUGS (1)
  1. CARBAMAZEPINE. [Suspect]
     Active Substance: CARBAMAZEPINE
     Indication: PRODUCT USED FOR UNKNOWN INDICATION
     Dosage: APPROXIMATELY 280 200 MG EXTENDED-RELEASE TABLETS

REACTIONS (7)
  - Shock [Recovered/Resolved]
  - Blood lactic acid increased [Recovered/Resolved]
  - Respiratory failure [Recovered/Resolved]
  - Overdose [Recovered/Resolved]
  - Mental status changes [Recovered/Resolved]
  - Seizure [Recovered/Resolved]
  - Lactic acidosis [Recovered/Resolved]
